FAERS Safety Report 7140977-7 (Version None)
Quarter: 2010Q4

REPORT INFORMATION
  Report Type: 
  Country: None (occurrence: None)
  Receive Date: 20101122
  Receipt Date: 20101108
  Transmission Date: 20110411
  Serious: No
  Sender: FDA-Public Use
  Company Number: 021721

PATIENT
  Sex: Female
  Weight: 88 kg

DRUGS (2)
  1. KEPPRA [Suspect]
     Indication: CONVULSION
     Dosage: (750 MG,1500 MG (2 TABLETS OF 750 MG) AM AND 1500 MG(2 TABLETS OF 750 MG) PM ORAL)
     Route: 048
     Dates: end: 20101103
  2. LAMICTAL [Concomitant]

REACTIONS (4)
  - CONVULSION [None]
  - HEADACHE [None]
  - NECK PAIN [None]
  - THERAPY CESSATION [None]
